FAERS Safety Report 5694915-4 (Version None)
Quarter: 2008Q2

REPORT INFORMATION
  Report Type: 
  Country: None (occurrence: None)
  Receive Date: 20080404
  Receipt Date: 20080327
  Transmission Date: 20081010
  Serious: Yes (Hospitalization)
  Sender: FDA-Public Use
  Company Number: JP-BRISTOL-MYERS SQUIBB COMPANY-14036495

PATIENT
  Age: 21 Year
  Sex: Male
  Weight: 68 kg

DRUGS (4)
  1. ABILIFY [Suspect]
     Indication: SCHIZOPHRENIA
     Dosage: 05-JAN-2008 TO 07-JAN-2008 (COMMERCIAL USE OF ARIPIPRAZOLE.  NOT STUDY THERAPY).
     Route: 048
     Dates: start: 20070720, end: 20080107
  2. WYPAX [Concomitant]
     Dosage: 16NOV07-19NOV07,34 DAYS, DOSE: 1.5 MG, TAB,20DEC07-4JAN08,16DAYS,1MG
     Route: 048
     Dates: start: 20071116, end: 20080104
  3. VALERIN [Concomitant]
     Dosage: 16NOV07-06DEC07,3WEEKS,400MG,ORAL.28DEC07-03JAN08,1WEEK,400MG,ORAL.04JAN08-CONTINUNING 600MG, ORAL.
     Route: 048
     Dates: start: 20071116
  4. OLANZAPINE [Concomitant]
     Route: 048
     Dates: start: 20080104

REACTIONS (8)
  - AGGRESSION [None]
  - AGITATION [None]
  - DRUG INEFFECTIVE [None]
  - EMOTIONAL DISORDER [None]
  - HALLUCINATION, AUDITORY [None]
  - NERVOUSNESS [None]
  - RESTLESSNESS [None]
  - VERBAL ABUSE [None]
